FAERS Safety Report 10079387 (Version 1)
Quarter: 2014Q2

REPORT INFORMATION
  Report Type: Spontaneous
  Country: FR (occurrence: FR)
  Receive Date: 20140415
  Receipt Date: 20140415
  Transmission Date: 20141212
  Serious: Yes (Hospitalization, Other)
  Sender: FDA-Public Use
  Company Number: FR-ABBVIE-14P-056-1226038-00

PATIENT
  Age: 43 Year
  Sex: Female

DRUGS (3)
  1. VALPROIC ACID [Suspect]
     Indication: FRONTAL LOBE EPILEPSY
  2. CARBAMAZEPINE [Suspect]
     Indication: FRONTAL LOBE EPILEPSY
  3. PHENOBARBITAL [Suspect]
     Indication: FRONTAL LOBE EPILEPSY

REACTIONS (6)
  - Vitamin D decreased [Unknown]
  - Osteopenia [Unknown]
  - Pain [Unknown]
  - Radius fracture [Unknown]
  - Physical disability [Unknown]
  - Oedema [Unknown]
